FAERS Safety Report 8514455 (Version 2)
Quarter: 2013Q1

REPORT INFORMATION
  Report Type: Spontaneous
  Country: US (occurrence: None)
  Receive Date: 20120410
  Receipt Date: 20130215
  Transmission Date: 20140127
  Serious: Yes (Hospitalization)
  Sender: FDA-Public Use
  Company Number: ADR-2012-00650

PATIENT
  Sex: Male

DRUGS (2)
  1. LIORESAL [Suspect]
     Dosage: SEE IMAGE
  2. LIORESAL [Suspect]
     Dosage: SEE IMAGE

REACTIONS (4)
  - HALLUCINATION [None]
  - DRUG WITHDRAWAL SYNDROME [None]
  - Syringomyelia [None]
  - DEVICE KINK [None]
